FAERS Safety Report 24223914 (Version 1)
Quarter: 2024Q3

REPORT INFORMATION
  Report Type: Spontaneous
  Country: US (occurrence: None)
  Receive Date: 20240819
  Receipt Date: 20240819
  Transmission Date: 20241016
  Serious: No
  Sender: Public
  Company Number: None

PATIENT
  Age: 53 Year
  Sex: Female
  Weight: 91.17 kg

DRUGS (3)
  1. COSENTYX [Suspect]
     Active Substance: SECUKINUMAB
     Indication: Psoriatic arthropathy
     Dosage: INJECT 150MG (1 PEN) SUBCUTANEOUSLY ON DAY 28 (DOSE 5) THEN EVERY 4 WEEKS AS DIRECTED .
     Route: 058
     Dates: start: 202403
  2. OTEZLA [Suspect]
     Active Substance: APREMILAST
  3. ADVAIR HFA [Suspect]
     Active Substance: FLUTICASONE PROPIONATE\SALMETEROL XINAFOATE

REACTIONS (3)
  - Illness [None]
  - Insurance issue [None]
  - Therapy interrupted [None]
